FAERS Safety Report 5469194-3 (Version None)
Quarter: 2007Q3

REPORT INFORMATION
  Report Type: 
  Country: None (occurrence: None)
  Receive Date: 20070927
  Receipt Date: 20070920
  Transmission Date: 20080115
  Serious: Yes (Hospitalization, Other)
  Sender: FDA-Public Use
  Company Number: US-JNJFOC-20070801367

PATIENT
  Sex: Male
  Weight: 104.33 kg

DRUGS (2)
  1. REMICADE [Suspect]
     Route: 042
  2. REMICADE [Suspect]
     Indication: RHEUMATOID ARTHRITIS
     Route: 042

REACTIONS (5)
  - ASTHENIA [None]
  - FALL [None]
  - SKIN ULCER [None]
  - SKULL FRACTURE [None]
  - STAPHYLOCOCCAL INFECTION [None]
